FAERS Safety Report 9442965 (Version 1)
Quarter: 2013Q3

REPORT INFORMATION
  Report Type: Report from Study
  Country: CA (occurrence: CA)
  Receive Date: 20130806
  Receipt Date: 20130806
  Transmission Date: 20140515
  Serious: Yes (Hospitalization)
  Sender: FDA-Public Use
  Company Number: CA-JNJFOC-20130522105

PATIENT
  Age: 42 Year
  Sex: Male
  Weight: 105.2 kg

DRUGS (4)
  1. REMICADE [Suspect]
     Indication: COLITIS ULCERATIVE
     Route: 042
     Dates: start: 20130213
  2. DALTEPARIN [Concomitant]
     Route: 058
  3. MERCAPTOPURINE [Concomitant]
     Route: 065
  4. CIPROFLOXACIN [Concomitant]
     Route: 048

REACTIONS (3)
  - Colitis ulcerative [Unknown]
  - Device occlusion [Recovered/Resolved]
  - Pregnancy of partner [Unknown]
